FAERS Safety Report 10418570 (Version 4)
Quarter: 2014Q3

REPORT INFORMATION
  Report Type: Spontaneous
  Country: JP (occurrence: None)
  Receive Date: 20140827
  Receipt Date: 20140908
  Transmission Date: 20150326
  Serious: Yes (Hospitalization, Other)
  Sender: FDA-Public Use
  Company Number: ADR-2014-01508

PATIENT
  Age: 17 Year
  Sex: Female
  Weight: 27 kg

DRUGS (1)
  1. GABALON INTRATHECAL [Suspect]
     Active Substance: BACLOFEN
     Indication: CEREBRAL PALSY
     Dates: start: 20130409

REACTIONS (10)
  - Implant site infection [None]
  - Sepsis [None]
  - Implant site extravasation [None]
  - Implant site swelling [None]
  - Incision site complication [None]
  - Skin atrophy [None]
  - Fungal infection [None]
  - Alanine aminotransferase increased [None]
  - Gamma-glutamyltransferase increased [None]
  - Blood uric acid decreased [None]
